FAERS Safety Report 9069268 (Version 2)
Quarter: 2013Q1

REPORT INFORMATION
  Report Type: Spontaneous
  Country: GB (occurrence: GB)
  Receive Date: 20130215
  Receipt Date: 20130226
  Transmission Date: 20140127
  Serious: Yes (Other)
  Sender: FDA-Public Use
  Company Number: GB-JNJFOC-20130200460

PATIENT
  Sex: Male

DRUGS (2)
  1. HALOPERIDOL [Suspect]
     Indication: MATERNAL EXPOSURE BEFORE PREGNANCY
     Route: 050
  2. VALIUM [Suspect]
     Indication: MATERNAL EXPOSURE BEFORE PREGNANCY
     Route: 050

REACTIONS (3)
  - Dyspraxia [Unknown]
  - Dyslexia [Unknown]
  - Asperger^s disorder [Unknown]
